FAERS Safety Report 16746841 (Version 1)
Quarter: 2019Q3

REPORT INFORMATION
  Report Type: Spontaneous
  Country: CO (occurrence: CO)
  Receive Date: 20190827
  Receipt Date: 20190827
  Transmission Date: 20191005
  Serious: Yes (Other)
  Sender: FDA-Public Use
  Company Number: CO-BIOMARINAP-CO-2019-125427

PATIENT
  Age: 9 Year
  Sex: Male
  Weight: 22 kg

DRUGS (1)
  1. VIMIZIM [Suspect]
     Active Substance: ELOSULFASE ALFA
     Indication: MUCOPOLYSACCHARIDOSIS
     Dosage: 22 MILLIGRAM, QW
     Route: 042

REACTIONS (3)
  - Hip surgery [Unknown]
  - Product dose omission [Unknown]
  - Knee operation [Unknown]

NARRATIVE: CASE EVENT DATE: 201908
